FAERS Safety Report 16703832 (Version 3)
Quarter: 2019Q3

REPORT INFORMATION
  Report Type: Spontaneous
  Country: AT (occurrence: AT)
  Receive Date: 20190814
  Receipt Date: 20190923
  Transmission Date: 20191004
  Serious: Yes (Hospitalization, Other)
  Sender: FDA-Public Use
  Company Number: AT-PFIZER INC-2019340714

PATIENT
  Age: 62 Year
  Sex: Female

DRUGS (1)
  1. HEPARIN GILVASAN [Suspect]
     Active Substance: HEPARIN SODIUM
     Dosage: 5000 IU, 1X/DAY

REACTIONS (4)
  - Loss of consciousness [Unknown]
  - Hydrocephalus [Unknown]
  - Drug ineffective [Unknown]
  - Haemorrhage intracranial [Unknown]
